FAERS Safety Report 17887439 (Version 1)
Quarter: 2020Q2

REPORT INFORMATION
  Report Type: Spontaneous
  Country: CO (occurrence: CO)
  Receive Date: 20200612
  Receipt Date: 20200612
  Transmission Date: 20200714
  Serious: Yes (Other)
  Sender: FDA-Public Use
  Company Number: CO-AMGEN-COLSP2020090676

PATIENT
  Age: 41 Year
  Sex: Female
  Weight: 64.8 kg

DRUGS (3)
  1. ETORICOXIB. [Concomitant]
     Active Substance: ETORICOXIB
     Dosage: 90 MG, 1X/DAY
  2. VITAMIN D3 [Concomitant]
     Active Substance: CHOLECALCIFEROL
     Dosage: 2000 IU
  3. ENBREL [Suspect]
     Active Substance: ETANERCEPT
     Indication: SPONDYLOARTHROPATHY
     Dosage: 50 MG, WEEKLY
     Route: 058

REACTIONS (4)
  - Off label use [Unknown]
  - Granulomatous pneumonitis [Recovered/Resolved]
  - Toxicity to various agents [Recovered/Resolved]
  - Drug effective for unapproved indication [Unknown]
